FAERS Safety Report 10073207 (Version 1)
Quarter: 2014Q2

REPORT INFORMATION
  Report Type: Spontaneous
  Country: ES (occurrence: ES)
  Receive Date: 20140411
  Receipt Date: 20140411
  Transmission Date: 20141212
  Serious: Yes (Life-Threatening, Hospitalization)
  Sender: FDA-Public Use
  Company Number: ES-PFIZER INC-2014101626

PATIENT
  Age: 30 Year
  Sex: Female

DRUGS (1)
  1. LOETTE [Suspect]
     Indication: ORAL CONTRACEPTION
     Dosage: 100 UG, 1X/DAY
     Route: 048
     Dates: start: 201307, end: 201401

REACTIONS (2)
  - Venous thrombosis limb [Recovering/Resolving]
  - Positron emission tomogram normal [Recovering/Resolving]
